FAERS Safety Report 7012278-9 (Version None)
Quarter: 2010Q3

REPORT INFORMATION
  Report Type: 
  Country: None (occurrence: None)
  Receive Date: 20100922
  Receipt Date: 20100922
  Transmission Date: 20110219
  Serious: Yes (Other)
  Sender: FDA-Public Use
  Company Number: None

PATIENT
  Sex: Female
  Weight: 97.5234 kg

DRUGS (2)
  1. ALENDRONATE SODIUM [Suspect]
     Indication: BREAST CANCER
     Dosage: 70MG QWEEK ORAL
     Route: 048
     Dates: start: 20090601, end: 20100101
  2. ALENDRONATE SODIUM [Suspect]
     Indication: OSTEOPENIA
     Dosage: 70MG QWEEK ORAL
     Route: 048
     Dates: start: 20090601, end: 20100101

REACTIONS (3)
  - DEVICE BREAKAGE [None]
  - FEMUR FRACTURE [None]
  - HIP FRACTURE [None]
